FAERS Safety Report 9828565 (Version 1)
Quarter: 2014Q1

REPORT INFORMATION
  Report Type: Spontaneous
  Country: US (occurrence: US)
  Receive Date: 20140117
  Receipt Date: 20140117
  Transmission Date: 20141002
  Serious: No
  Sender: FDA-Public Use
  Company Number: US-B.I. PHARMACEUTICALS,INC./RIDGEFIELD-2014-BI-00515BP

PATIENT
  Sex: Female
  Weight: 110 kg

DRUGS (1)
  1. COMBIVENT [Suspect]
     Indication: ASTHMA
     Dosage: STRENGTH: 18 MCG / 103 MCG;
     Route: 055
     Dates: start: 2008, end: 201310

REACTIONS (4)
  - Dyspnoea [Recovered/Resolved]
  - Nocturnal dyspnoea [Not Recovered/Not Resolved]
  - Cough [Not Recovered/Not Resolved]
  - Off label use [Recovered/Resolved]
